FAERS Safety Report 25634649 (Version 1)
Quarter: 2025Q3

REPORT INFORMATION
  Report Type: Spontaneous
  Country: US (occurrence: US)
  Receive Date: 20250801
  Receipt Date: 20250801
  Transmission Date: 20251021
  Serious: Yes (Other)
  Sender: ABBVIE
  Company Number: US-ABBVIE-6394560

PATIENT

DRUGS (2)
  1. RINVOQ [Suspect]
     Active Substance: UPADACITINIB
     Indication: Colitis ulcerative
     Route: 048
  2. VELSIPITY [Suspect]
     Active Substance: ETRASIMOD ARGININE
     Indication: Colitis ulcerative
     Route: 065

REACTIONS (9)
  - Large intestine perforation [Unknown]
  - Cytomegalovirus infection [Not Recovered/Not Resolved]
  - Proctitis [Unknown]
  - Rectal haemorrhage [Unknown]
  - Unevaluable event [Unknown]
  - Colitis ulcerative [Not Recovered/Not Resolved]
  - Drug ineffective [Unknown]
  - General symptom [Unknown]
  - Anorectal disorder [Unknown]
